FAERS Safety Report 10660135 (Version 4)
Quarter: 2016Q3

REPORT INFORMATION
  Report Type: Spontaneous
  Country: US (occurrence: US)
  Receive Date: 20141217
  Receipt Date: 20160929
  Transmission Date: 20161109
  Serious: Yes (Other)
  Sender: FDA-Public Use
  Company Number: US-CELGENEUS-163-20785-14013676

PATIENT
  Sex: Female
  Weight: 53.57 kg

DRUGS (12)
  1. THALOMID [Suspect]
     Active Substance: THALIDOMIDE
     Route: 048
     Dates: start: 2012
  2. PROLIA [Suspect]
     Active Substance: DENOSUMAB
     Route: 048
     Dates: start: 200603
  3. CLONIDINE. [Concomitant]
     Active Substance: CLONIDINE
     Indication: PRODUCT USED FOR UNKNOWN INDICATION
     Route: 065
  4. CLONAZEPAM. [Concomitant]
     Active Substance: CLONAZEPAM
     Indication: PRODUCT USED FOR UNKNOWN INDICATION
     Route: 065
  5. THALOMID [Suspect]
     Active Substance: THALIDOMIDE
     Indication: OFF LABEL USE
     Route: 048
     Dates: start: 200205
  6. PROLIA [Suspect]
     Active Substance: DENOSUMAB
     Indication: SYSTEMIC LUPUS ERYTHEMATOSUS
     Route: 048
     Dates: start: 2001
  7. PROLIA [Suspect]
     Active Substance: DENOSUMAB
     Route: 048
     Dates: start: 200811
  8. WARFARIN [Concomitant]
     Active Substance: WARFARIN
     Indication: PRODUCT USED FOR UNKNOWN INDICATION
     Route: 065
  9. THALOMID [Suspect]
     Active Substance: THALIDOMIDE
     Route: 048
     Dates: start: 200301
  10. THALOMID [Suspect]
     Active Substance: THALIDOMIDE
     Route: 048
     Dates: start: 201403
  11. IRON [Concomitant]
     Active Substance: IRON
     Indication: PRODUCT USED FOR UNKNOWN INDICATION
     Route: 065
  12. THALOMID [Suspect]
     Active Substance: THALIDOMIDE
     Indication: SYSTEMIC LUPUS ERYTHEMATOSUS
     Route: 048
     Dates: start: 200108

REACTIONS (10)
  - Renal failure [Not Recovered/Not Resolved]
  - Urinary tract infection [Unknown]
  - Withdrawal syndrome [Unknown]
  - Insomnia [Unknown]
  - Tooth disorder [Unknown]
  - Somnolence [Unknown]
  - Feeling abnormal [Unknown]
  - Epistaxis [Unknown]
  - Confusional state [Unknown]
  - Pyrexia [Unknown]

NARRATIVE: CASE EVENT DATE: 2006
